FAERS Safety Report 23831801 (Version 1)
Quarter: 2024Q2

REPORT INFORMATION
  Report Type: Other
  Country: NL (occurrence: None)
  Receive Date: 20240508
  Receipt Date: 20240508
  Transmission Date: 20240716
  Serious: Yes (Hospitalization, Other)
  Sender: FDA-Public Use
  Company Number: NL-ROCHE-3556646

PATIENT
  Age: 28 Year
  Sex: Female

DRUGS (4)
  1. EMICIZUMAB [Suspect]
     Active Substance: EMICIZUMAB
     Indication: Postpartum haemorrhage
     Dosage: ON DAY 1
     Route: 065
  2. EMICIZUMAB [Suspect]
     Active Substance: EMICIZUMAB
     Indication: Von Willebrand^s disease
     Dosage: ON DAY 2
     Route: 065
  3. EMICIZUMAB [Suspect]
     Active Substance: EMICIZUMAB
     Dosage: FROM THE SECOND WEEK ONWARD.?CONTINUED EVERY 2 WEEKS.
     Route: 065
  4. COAGULATION FACTOR VIIA RECOMBINANT HUMAN [Concomitant]
     Active Substance: COAGULATION FACTOR VIIA RECOMBINANT HUMAN

REACTIONS (8)
  - Haemarthrosis [Unknown]
  - Haematoma infection [Unknown]
  - Intermenstrual bleeding [Unknown]
  - Intra-abdominal haemorrhage [Recovering/Resolving]
  - Pulmonary embolism [Unknown]
  - Vaginal haemorrhage [Recovering/Resolving]
  - Pelvic venous thrombosis [Unknown]
  - Off label use [Unknown]
